FAERS Safety Report 9555596 (Version 1)
Quarter: 2013Q3

REPORT INFORMATION
  Report Type: Spontaneous
  Country: US (occurrence: None)
  Receive Date: 20130726
  Receipt Date: 20130726
  Transmission Date: 20140515
  Serious: Yes (Hospitalization)
  Sender: FDA-Public Use
  Company Number: UTC-021371

PATIENT
  Age: 38 Year
  Sex: Male

DRUGS (3)
  1. REMODULIN (5 MILLIGRAM/ MILLILITERS, INJECTION FOR INFUSION) (TREPROSTINIL SODIUM) [Suspect]
     Dosage: 95.04 UG/KG (0.066 UG/KG, 1 IN 1 MIN) , INTRAVENOUS DRIP
     Route: 041
     Dates: start: 20111206
  2. COUMADIN (WARFARIN) [Concomitant]
  3. REVATIO (SILDENAFIL CITRATE) (UNKNOWN) (SILDENAFIL) [Concomitant]

REACTIONS (1)
  - Device related infection [None]
